FAERS Safety Report 24407858 (Version 2)
Quarter: 2024Q4

REPORT INFORMATION
  Report Type: Spontaneous
  Country: US (occurrence: US)
  Receive Date: 20241007
  Receipt Date: 20241108
  Transmission Date: 20250115
  Serious: Yes (Other)
  Sender: SANOFI AVENTIS
  Company Number: US-SA-2024SA285768

PATIENT
  Age: 50 Year
  Sex: Female

DRUGS (1)
  1. DUPIXENT [Suspect]
     Active Substance: DUPILUMAB
     Indication: Dermatitis atopic
     Dosage: 300 MG, QOW
     Route: 058

REACTIONS (12)
  - Neuropathy peripheral [Unknown]
  - Burning sensation [Unknown]
  - Injection site nodule [Unknown]
  - Pain [Unknown]
  - Dizziness [Unknown]
  - Dark circles under eyes [Unknown]
  - Malaise [Unknown]
  - Swelling face [Unknown]
  - Eye discharge [Unknown]
  - Arthralgia [Unknown]
  - Rash [Recovered/Resolved]
  - Conjunctivitis [Unknown]

NARRATIVE: CASE EVENT DATE: 20240101
